FAERS Safety Report 15731102 (Version 1)
Quarter: 2018Q4

REPORT INFORMATION
  Report Type: Spontaneous
  Country: US (occurrence: US)
  Receive Date: 20181217
  Receipt Date: 20181217
  Transmission Date: 20190205
  Serious: Yes (Hospitalization, Disabling)
  Sender: FDA-Public Use
  Company Number: None

PATIENT
  Age: 41 Year
  Sex: Female
  Weight: 57.15 kg

DRUGS (6)
  1. CYMBALTA [Concomitant]
     Active Substance: DULOXETINE HYDROCHLORIDE
  2. LUPRON [Suspect]
     Active Substance: LEUPROLIDE ACETATE
     Indication: ENDOMETRIOSIS
     Dosage: ?          QUANTITY:3.75 INJECTION(S);?
     Route: 030
     Dates: start: 20080201, end: 20111101
  3. ADDERALL [Concomitant]
     Active Substance: AMPHETAMINE ASPARTATE\AMPHETAMINE SULFATE\DEXTROAMPHETAMINE SACCHARATE\DEXTROAMPHETAMINE SULFATE
  4. SYNTHROID [Concomitant]
     Active Substance: LEVOTHYROXINE SODIUM
  5. OXY [Concomitant]
     Active Substance: BENZOYL PEROXIDE
  6. AMBIEN [Concomitant]
     Active Substance: ZOLPIDEM TARTRATE

REACTIONS (24)
  - Skin disorder [None]
  - Migraine [None]
  - Vitamin D deficiency [None]
  - Alopecia [None]
  - Visual impairment [None]
  - Amnesia [None]
  - Hysterectomy [None]
  - Osteoporosis [None]
  - Bone loss [None]
  - Depression [None]
  - Infected lymphocele [None]
  - Connective tissue disorder [None]
  - Fatigue [None]
  - Thyroid disorder [None]
  - Bone marrow disorder [None]
  - Osteopenia [None]
  - Bone pain [None]
  - Immune system disorder [None]
  - Swelling [None]
  - Arthralgia [None]
  - Insomnia [None]
  - Tooth loss [None]
  - Hypoaesthesia [None]
  - Paraesthesia [None]

NARRATIVE: CASE EVENT DATE: 20141101
